FAERS Safety Report 25404327 (Version 1)
Quarter: 2025Q2

REPORT INFORMATION
  Report Type: Spontaneous
  Country: US (occurrence: US)
  Receive Date: 20250606
  Receipt Date: 20250606
  Transmission Date: 20250717
  Serious: No
  Sender: PIERRE FABRE MEDICAMENT
  Company Number: US-PFM-2024-02882

PATIENT
  Sex: Female
  Weight: 9.52 kg

DRUGS (1)
  1. HEMANGEOL [Suspect]
     Active Substance: PROPRANOLOL HYDROCHLORIDE
     Indication: Haemangioma
     Dosage: 1.5 ML, BID (2/DAY)
     Dates: start: 20240405

REACTIONS (6)
  - Sleep disorder [Recovering/Resolving]
  - Crying [Unknown]
  - Disease recurrence [Recovering/Resolving]
  - Haemangioma [Recovering/Resolving]
  - Nasal congestion [Unknown]
  - Cold sweat [Unknown]
